FAERS Safety Report 9004588 (Version 1)
Quarter: 2013Q1

REPORT INFORMATION
  Report Type: Spontaneous
  Country: US (occurrence: US)
  Receive Date: 20130108
  Receipt Date: 20130108
  Transmission Date: 20140127
  Serious: Yes (Other)
  Sender: FDA-Public Use
  Company Number: US-ROCHE-1161600

PATIENT
  Sex: Male

DRUGS (5)
  1. AVASTIN [Suspect]
     Indication: COLORECTAL CANCER METASTATIC
     Route: 065
  2. 5-FU [Concomitant]
  3. LEUCOVORIN [Concomitant]
  4. DECADRON [Concomitant]
     Indication: PREMEDICATION
  5. OXALIPLATIN [Concomitant]

REACTIONS (5)
  - Angioedema [Unknown]
  - Swollen tongue [Unknown]
  - Dysphagia [Unknown]
  - Neuropathy peripheral [Unknown]
  - Lip oedema [Recovered/Resolved]
